FAERS Safety Report 7516647-X (Version None)
Quarter: 2011Q2

REPORT INFORMATION
  Report Type: 
  Country: None (occurrence: None)
  Receive Date: 20110601
  Receipt Date: 20110526
  Transmission Date: 20111010
  Serious: Yes (Hospitalization)
  Sender: FDA-Public Use
  Company Number: CH-PFIZER INC-2011113776

PATIENT
  Age: 76 Year
  Sex: Female
  Weight: 88 kg

DRUGS (16)
  1. ALLOPURINOL [Suspect]
     Indication: GOUT
     Dosage: 300 MG, 1X/DAY
     Route: 048
     Dates: start: 20110407, end: 20110420
  2. TRAMADOL HCL [Suspect]
     Indication: ARTHRALGIA
     Dosage: 100 MG, 1X/DAY
     Route: 048
     Dates: end: 20110419
  3. CALCIUM SANDOZ FORTE D [Concomitant]
     Dosage: 1 DF, 1X/DAY
     Route: 048
  4. FERRUM-HAUSMANN ^SIGMA^ [Concomitant]
     Dosage: 100 MG, 1X/DAY
     Route: 048
  5. LASIX [Suspect]
     Indication: ESSENTIAL HYPERTENSION
     Dosage: 250 MG, 1X/DAY
     Route: 048
     Dates: end: 20110419
  6. TEGRETOL-XR [Suspect]
     Dosage: 400 MG, 2X/DAY
     Route: 048
     Dates: end: 20110419
  7. KCL-ZYMA [Concomitant]
     Dosage: 1 DF, 1X/DAY
     Route: 048
  8. BONIVA [Concomitant]
     Dosage: 150 MG, MONTHLY
     Route: 048
  9. NEBIVOLOL HCL [Concomitant]
     Dosage: UNK MG, 1X/DAY
     Route: 048
  10. ATACAND [Suspect]
     Indication: ESSENTIAL HYPERTENSION
     Dosage: 4 MG, 1X/DAY
     Route: 048
     Dates: end: 20110419
  11. ACETAMINOPHEN [Suspect]
     Indication: ARTHRALGIA
     Dosage: 500 MG, AS NEEDED
     Route: 048
     Dates: end: 20110419
  12. ATORVASTATIN CALCIUM [Suspect]
     Indication: HYPERCHOLESTEROLAEMIA
     Dosage: 40 MG, 1X/DAY
     Route: 048
     Dates: start: 20000101, end: 20110419
  13. OMEPRAZOLE SODIUM [Suspect]
     Dosage: 20 MG, 1X/DAY
     Route: 048
     Dates: end: 20110419
  14. PARLODEL [Concomitant]
     Indication: PROLACTINOMA
     Dosage: 2.5 MG, 1X/DAY
     Route: 048
     Dates: start: 19930101
  15. ASPIRIN [Concomitant]
     Dosage: 100 MG, 1X/DAY
     Route: 048
  16. IMPORTAL [Concomitant]
     Dosage: 10 G, 3X/DAY AS NEEDED
     Route: 048

REACTIONS (4)
  - HEPATOCELLULAR INJURY [None]
  - HYPERBILIRUBINAEMIA [None]
  - RENAL FAILURE ACUTE [None]
  - INTERNATIONAL NORMALISED RATIO INCREASED [None]
